FAERS Safety Report 8522554-6 (Version None)
Quarter: 2012Q3

REPORT INFORMATION
  Report Type: 
  Country: None (occurrence: None)
  Receive Date: 20120719
  Receipt Date: 20120710
  Transmission Date: 20120928
  Serious: Yes (Hospitalization, Other)
  Sender: FDA-Public Use
  Company Number: FR-ABBOTT-12P-056-0944107-00

PATIENT
  Sex: Male

DRUGS (4)
  1. METHOTREXATE [Concomitant]
     Dates: start: 20120101
  2. CELEBREX [Concomitant]
     Indication: PSORIATIC ARTHROPATHY
     Route: 048
     Dates: start: 20120101
  3. METHOTREXATE [Concomitant]
     Indication: PSORIATIC ARTHROPATHY
     Dates: start: 20091201, end: 20120401
  4. HUMIRA [Suspect]
     Indication: PSORIATIC ARTHROPATHY
     Dosage: 2 TO 3 INJECTIONS
     Dates: start: 20120221, end: 20120501

REACTIONS (12)
  - BONE EROSION [None]
  - SYNOVIAL FLUID ANALYSIS ABNORMAL [None]
  - PSORIATIC ARTHROPATHY [None]
  - ANAEMIA [None]
  - OSTEITIS [None]
  - JOINT SWELLING [None]
  - LEUKOCYTOSIS [None]
  - ARTHRITIS [None]
  - INFLAMMATORY MARKER INCREASED [None]
  - TENOSYNOVITIS [None]
  - EXOSTOSIS [None]
  - PLATELET COUNT INCREASED [None]
